FAERS Safety Report 15393707 (Version 1)
Quarter: 2018Q3

REPORT INFORMATION
  Report Type: Spontaneous
  Country: JP (occurrence: JP)
  Receive Date: 20180917
  Receipt Date: 20180917
  Transmission Date: 20181010
  Serious: Yes (Death, Hospitalization)
  Sender: FDA-Public Use
  Company Number: JP-BAYER-2018-075690

PATIENT
  Age: 79 Year
  Sex: Female
  Weight: 39 kg

DRUGS (1)
  1. NEXAVAR [Suspect]
     Active Substance: SORAFENIB
     Indication: THYROID CANCER
     Dosage: 400 MG, QD
     Route: 048
     Dates: start: 20180402, end: 20180415

REACTIONS (5)
  - Thyroid cancer [Fatal]
  - Generalised erythema [Recovered/Resolved]
  - Erythema multiforme [Recovered/Resolved]
  - Oral mucosal eruption [Recovered/Resolved]
  - Pyrexia [Recovered/Resolved]

NARRATIVE: CASE EVENT DATE: 20180415
